FAERS Safety Report 6375213-2 (Version None)
Quarter: 2009Q3

REPORT INFORMATION
  Report Type: 
  Country: None (occurrence: None)
  Receive Date: 20090921
  Receipt Date: 20090921
  Transmission Date: 20100115
  Serious: Yes (Hospitalization)
  Sender: FDA-Public Use
  Company Number: None

PATIENT
  Sex: Male
  Weight: 68.2 kg

DRUGS (2)
  1. DOCETAXEL [Suspect]
     Dosage: 142 MG
  2. LEUPROLIDE ACETATE [Suspect]
     Dosage: 22.5 MG

REACTIONS (6)
  - CACHEXIA [None]
  - DEHYDRATION [None]
  - PROSTATITIS [None]
  - URINARY TRACT INFECTION [None]
  - WHITE BLOOD CELL COUNT INCREASED [None]
  - WHITE BLOOD CELLS URINE POSITIVE [None]
